FAERS Safety Report 25239202 (Version 2)
Quarter: 2025Q2

REPORT INFORMATION
  Report Type: Report from Study
  Country: CL (occurrence: CL)
  Receive Date: 20250425
  Receipt Date: 20250507
  Transmission Date: 20250716
  Serious: Yes (Hospitalization)
  Sender: ROCHE
  Company Number: CL-ROCHE-10000267242

PATIENT
  Age: 70 Year
  Sex: Female

DRUGS (5)
  1. PHESGO [Suspect]
     Active Substance: HYALURONIDASE-ZZXF\PERTUZUMAB\TRASTUZUMAB
     Indication: Breast cancer metastatic
     Dosage: LOADING DOSE CYCLE 1- 1200/600 MG AND THEN FOR 5 CYCLES 600/600 MG
     Route: 058
     Dates: start: 20250324
  2. DOCETAXEL [Concomitant]
     Active Substance: DOCETAXEL
     Indication: Breast cancer metastatic
     Dosage: THERAPY WAS ONGOING.
     Route: 042
     Dates: start: 20250325
  3. VALAX D [Concomitant]
     Route: 048
  4. ATENOLOL [Concomitant]
     Active Substance: ATENOLOL
     Route: 048
  5. ATV [Concomitant]
     Route: 048

REACTIONS (12)
  - Diarrhoea [Recovering/Resolving]
  - Syncope [Unknown]
  - Asthenia [Unknown]
  - Febrile infection [Unknown]
  - Immunodeficiency [Unknown]
  - Colitis [Recovered/Resolved]
  - Neutropenic colitis [Unknown]
  - Neutropenia [Unknown]
  - Spinal column injury [Unknown]
  - Traumatic lung injury [Unknown]
  - Gastroenteritis [Unknown]
  - Constipation [Unknown]

NARRATIVE: CASE EVENT DATE: 20250328
